FAERS Safety Report 6045053-2 (Version None)
Quarter: 2009Q1

REPORT INFORMATION
  Report Type: 
  Country: None (occurrence: None)
  Receive Date: 20090121
  Receipt Date: 20090119
  Transmission Date: 20090719
  Serious: Yes (Hospitalization, Other)
  Sender: FDA-Public Use
  Company Number: FR-BRISTOL-MYERS SQUIBB COMPANY-14475883

PATIENT
  Age: 58 Year
  Sex: Male

DRUGS (4)
  1. REYATAZ [Suspect]
     Indication: HIV INFECTION
     Route: 048
     Dates: start: 20051222, end: 20081204
  2. NORVIR [Suspect]
     Indication: HIV INFECTION
     Route: 048
     Dates: start: 20051222
  3. ZIAGEN [Suspect]
     Indication: HIV INFECTION
     Route: 048
     Dates: start: 20051222
  4. TRUVADA [Suspect]
     Indication: HIV INFECTION
     Dosage: 1 DOSAGE FORM = 1 TAB TAKEN EVERY 2 DAYS FROM 05-DEC TO 08-DEC-2008
     Route: 048
     Dates: start: 20051222

REACTIONS (4)
  - CALCULUS BLADDER [None]
  - ESCHERICHIA BACTERAEMIA [None]
  - RENAL COLIC [None]
  - URINARY TRACT INFECTION [None]
